FAERS Safety Report 21715669 (Version 1)
Quarter: 2022Q4

REPORT INFORMATION
  Report Type: Spontaneous
  Country: US (occurrence: None)
  Receive Date: 20221210
  Receipt Date: 20221210
  Transmission Date: 20230113
  Serious: No
  Sender: FDA-Public Use
  Company Number: None

PATIENT
  Age: 63 Year
  Sex: Female
  Weight: 87.75 kg

DRUGS (19)
  1. OZEMPIC [Suspect]
     Active Substance: SEMAGLUTIDE
     Indication: Weight decreased
     Dosage: OTHER STRENGTH : 1;?OTHER QUANTITY : .25 1;?FREQUENCY : WEEKLY;?OTHER ROUTE : INJECTED UNDER SKIN;?
     Route: 050
     Dates: start: 20221101, end: 20221210
  2. lisinopiril [Concomitant]
  3. PREMPRO [Concomitant]
     Active Substance: ESTROGENS, CONJUGATED\MEDROXYPROGESTERONE ACETATE
  4. HYDROCHLOROTHIAZIDE [Concomitant]
     Active Substance: HYDROCHLOROTHIAZIDE
  5. ROSUVASTATIN [Concomitant]
     Active Substance: ROSUVASTATIN
  6. XANAX [Concomitant]
     Active Substance: ALPRAZOLAM
  7. buprofion [Concomitant]
  8. VITAMINS [Concomitant]
     Active Substance: VITAMINS
  9. POTASSIUM [Concomitant]
     Active Substance: POTASSIUM
  10. MAGNESIUM [Concomitant]
     Active Substance: MAGNESIUM
  11. lisinopiril [Concomitant]
  12. PREMPRO [Concomitant]
     Active Substance: ESTROGENS, CONJUGATED\MEDROXYPROGESTERONE ACETATE
  13. HYDROCHLOROTHIAZIDE [Concomitant]
     Active Substance: HYDROCHLOROTHIAZIDE
  14. ROSUVASTATIN [Concomitant]
     Active Substance: ROSUVASTATIN
  15. XANAX [Concomitant]
     Active Substance: ALPRAZOLAM
  16. buprofion [Concomitant]
  17. VITAMINS [Concomitant]
     Active Substance: VITAMINS
  18. POTASSIUM [Concomitant]
     Active Substance: POTASSIUM
  19. MAGNESIUM [Concomitant]
     Active Substance: MAGNESIUM

REACTIONS (1)
  - Muscle spasms [None]

NARRATIVE: CASE EVENT DATE: 20221204
